FAERS Safety Report 18504314 (Version 1)
Quarter: 2020Q4

REPORT INFORMATION
  Report Type: Spontaneous
  Country: GB (occurrence: GB)
  Receive Date: 20201114
  Receipt Date: 20201114
  Transmission Date: 20210114
  Serious: No
  Sender: FDA-Public Use
  Company Number: GB-ALKEM LABORATORIES LIMITED-GB-ALKEM-2020-05708

PATIENT
  Age: 62 Year
  Sex: Female

DRUGS (1)
  1. PREGABALIN. [Suspect]
     Active Substance: PREGABALIN
     Indication: PRODUCT USED FOR UNKNOWN INDICATION
     Dosage: 600 MILLIGRAM, QD (EVERY 1 DAY)
     Route: 065

REACTIONS (13)
  - Decreased appetite [Not Recovered/Not Resolved]
  - Hyperhidrosis [Unknown]
  - Tooth disorder [Unknown]
  - Gait disturbance [Unknown]
  - Nausea [Unknown]
  - Withdrawal syndrome [Unknown]
  - Pruritus [Unknown]
  - Formication [Unknown]
  - Skin discolouration [Recovered/Resolved]
  - Dizziness [Unknown]
  - Headache [Unknown]
  - Weight increased [Recovered/Resolved]
  - Restless legs syndrome [Unknown]
